FAERS Safety Report 5499981-7 (Version None)
Quarter: 2007Q4

REPORT INFORMATION
  Report Type: 
  Country: None (occurrence: None)
  Receive Date: 20071026
  Receipt Date: 20071015
  Transmission Date: 20080405
  Serious: Yes (Other)
  Sender: FDA-Public Use
  Company Number: FR-PFIZER INC-2007088588

PATIENT
  Age: 53 Year
  Sex: Female

DRUGS (2)
  1. CABERGOLINE [Suspect]
     Indication: GALACTORRHOEA
  2. CABERGOLINE [Suspect]
     Indication: BREAST PAIN

REACTIONS (1)
  - AORTIC VALVE INCOMPETENCE [None]
